FAERS Safety Report 4433561-7 (Version None)
Quarter: 2004Q3

REPORT INFORMATION
  Report Type: 
  Country: None (occurrence: None)
  Receive Date: 20040826
  Receipt Date: 20040816
  Transmission Date: 20050211
  Serious: Yes (Other)
  Sender: FDA-Public Use
  Company Number: PHBS2004CZ10815

PATIENT
  Sex: Male

DRUGS (2)
  1. LUDIOMIL [Suspect]
     Dosage: 25 MG, QD
     Route: 065
  2. AURORIX [Suspect]
     Dosage: 450 MG, QD
     Route: 065

REACTIONS (6)
  - CIRCULATORY COLLAPSE [None]
  - DRUG INTERACTION [None]
  - MENTAL IMPAIRMENT [None]
  - MOVEMENT DISORDER [None]
  - MYALGIA [None]
  - VOMITING [None]
